FAERS Safety Report 17180743 (Version 1)
Quarter: 2019Q4

REPORT INFORMATION
  Report Type: Spontaneous
  Country: US (occurrence: US)
  Receive Date: 20191220
  Receipt Date: 20191220
  Transmission Date: 20200122
  Serious: Yes (Death)
  Sender: FDA-Public Use
  Company Number: US-CHEPLA-C20193454_02

PATIENT
  Age: 18 Year
  Sex: Male

DRUGS (6)
  1. GANCICLOVIR. [Suspect]
     Active Substance: GANCICLOVIR
     Dosage: 5MG/KG EVERY 12 HOURS
     Route: 042
     Dates: start: 20110912, end: 20120224
  2. FOSCARNET [Suspect]
     Active Substance: FOSCARNET
     Route: 042
     Dates: start: 20120607, end: 20120727
  3. VALGANCICLOVIR. [Suspect]
     Active Substance: VALGANCICLOVIR
     Dosage: 900 MG TWICE DAILY
     Route: 048
     Dates: start: 20081028, end: 20110712
  4. FOSCARNET [Suspect]
     Active Substance: FOSCARNET
     Route: 042
     Dates: start: 20120224, end: 20120326
  5. VALGANCICLOVIR. [Suspect]
     Active Substance: VALGANCICLOVIR
     Dosage: 900 MG TWICE DAILY
     Route: 048
     Dates: start: 20130131, end: 20130215
  6. GANCICLOVIR. [Suspect]
     Active Substance: GANCICLOVIR
     Dosage: 5MG/KG EVERY 12 HOURS
     Route: 042
     Dates: start: 20160208, end: 20160608

REACTIONS (3)
  - Disease progression [Fatal]
  - Drug resistance [Unknown]
  - Pyrexia [Unknown]
